FAERS Safety Report 16394296 (Version 1)
Quarter: 2019Q2

REPORT INFORMATION
  Report Type: Spontaneous
  Country: US (occurrence: US)
  Receive Date: 20190605
  Receipt Date: 20190605
  Transmission Date: 20190711
  Serious: Yes (Other)
  Sender: FDA-Public Use
  Company Number: US-MELINTA THERAPEUTICS, INC-US-MLNT-19-00085

PATIENT
  Age: 83 Year
  Sex: Male

DRUGS (1)
  1. ORBACTIV [Suspect]
     Active Substance: ORITAVANCIN
     Indication: PRODUCT USED FOR UNKNOWN INDICATION
     Dosage: NOT PROVIDED.
     Route: 041
     Dates: start: 20190515, end: 20190515

REACTIONS (8)
  - Heart rate decreased [Unknown]
  - Eye movement disorder [Unknown]
  - Cyanosis [Unknown]
  - Back pain [Unknown]
  - Hypopnoea [Recovered/Resolved]
  - Unresponsive to stimuli [Recovered/Resolved]
  - Cardiovascular disorder [Unknown]
  - Seizure [Recovered/Resolved]

NARRATIVE: CASE EVENT DATE: 20190515
